FAERS Safety Report 5613630-6 (Version None)
Quarter: 2008Q1

REPORT INFORMATION
  Report Type: 
  Country: None (occurrence: None)
  Receive Date: 20080205
  Receipt Date: 20080125
  Transmission Date: 20080703
  Serious: Yes (Hospitalization)
  Sender: FDA-Public Use
  Company Number: DE-JNJFOC-20071201633

PATIENT
  Sex: Male
  Weight: 64 kg

DRUGS (13)
  1. TMC125 [Suspect]
     Route: 048
  2. TMC125 [Suspect]
     Indication: HIV INFECTION
     Route: 048
  3. PREZISTA [Concomitant]
     Indication: HIV INFECTION
     Route: 048
  4. CELSENTRI [Concomitant]
     Indication: HIV INFECTION
     Route: 065
  5. NORVIR [Concomitant]
     Indication: HIV INFECTION
     Route: 065
  6. KIVEXA [Concomitant]
     Indication: HIV INFECTION
     Route: 065
  7. IBUPROFEN [Concomitant]
     Route: 065
  8. DURAGESIC-100 [Concomitant]
     Route: 065
  9. PANTOZOL [Concomitant]
     Route: 065
  10. ALBUTEROL [Concomitant]
     Route: 065
  11. NOVALMINSULFON [Concomitant]
     Route: 065
  12. ACIC [Concomitant]
     Route: 042
  13. ROCEPHIN [Concomitant]
     Route: 065

REACTIONS (3)
  - BRONCHITIS [None]
  - DIZZINESS [None]
  - HERPES ZOSTER [None]
